FAERS Safety Report 5157148-6 (Version None)
Quarter: 2006Q4

REPORT INFORMATION
  Report Type: 
  Country: None (occurrence: None)
  Receive Date: 20061115
  Receipt Date: 20061102
  Transmission Date: 20070319
  Serious: Yes (Hospitalization)
  Sender: FDA-Public Use
  Company Number: SU-2006-005596

PATIENT
  Age: 76 Year
  Sex: Male
  Weight: 83.9154 kg

DRUGS (6)
  1. BENICAR [Suspect]
     Indication: HYPERTENSION
     Dosage: 40 MG QD PO
     Route: 048
     Dates: start: 20040101, end: 20061001
  2. WARFARIN SODIUM [Concomitant]
  3. PRAVASTATIN [Concomitant]
  4. ARICEPT [Concomitant]
  5. VITAMIN B-12 [Concomitant]
  6. LEVOTHYROXINE SODIUM [Concomitant]

REACTIONS (7)
  - ANAEMIA [None]
  - COELIAC DISEASE [None]
  - DEHYDRATION [None]
  - DIARRHOEA [None]
  - MALAISE [None]
  - REACTION TO DRUG EXCIPIENTS [None]
  - WEIGHT DECREASED [None]
